FAERS Safety Report 8577499-2 (Version None)
Quarter: 2012Q3

REPORT INFORMATION
  Report Type: 
  Country: None (occurrence: None)
  Receive Date: 20120807
  Receipt Date: 20120801
  Transmission Date: 20120928
  Serious: Yes (Hospitalization)
  Sender: FDA-Public Use
  Company Number: FR-PFIZER INC-2012186312

PATIENT
  Age: 64 Year
  Sex: Female

DRUGS (3)
  1. THYMOGLOBULIN [Suspect]
     Dosage: 2MG/M2
     Route: 042
     Dates: start: 20101112, end: 20101116
  2. CYCLOPHOSPHAMIDE [Suspect]
     Dosage: 50 MG/M2
     Route: 042
     Dates: start: 20101110, end: 20101114
  3. SOLU-MEDROL [Suspect]
     Dosage: 25 MG, 4X/DAY
     Dates: start: 20101112, end: 20101116

REACTIONS (1)
  - ACUTE PULMONARY OEDEMA [None]
